FAERS Safety Report 14505961 (Version 1)
Quarter: 2018Q1

REPORT INFORMATION
  Report Type: Spontaneous
  Country: DE (occurrence: DE)
  Receive Date: 20180208
  Receipt Date: 20180208
  Transmission Date: 20180509
  Serious: Yes (Hospitalization, Other)
  Sender: FDA-Public Use
  Company Number: DE-BAYER-2017-248019

PATIENT
  Age: 34 Year
  Sex: Female
  Weight: 65 kg

DRUGS (1)
  1. JAYDESS [Suspect]
     Active Substance: LEVONORGESTREL
     Indication: CONTRACEPTION
     Dosage: 14 MCG/24HR, CONT
     Route: 015
     Dates: start: 20170619

REACTIONS (5)
  - Ectopic pregnancy with contraceptive device [None]
  - Intra-abdominal haemorrhage [None]
  - Haemorrhage in pregnancy [None]
  - Abdominal pain [None]
  - Drug ineffective [None]

NARRATIVE: CASE EVENT DATE: 20171220
